FAERS Safety Report 6743850-9 (Version None)
Quarter: 2010Q2

REPORT INFORMATION
  Report Type: 
  Country: None (occurrence: None)
  Receive Date: 20100527
  Receipt Date: 20100218
  Transmission Date: 20101027
  Serious: No
  Sender: FDA-Public Use
  Company Number: US-KINGPHARMUSA00001-K201000195

PATIENT
  Sex: Male
  Weight: 83.9 kg

DRUGS (3)
  1. FLECTOR [Suspect]
     Indication: BACK PAIN
     Dosage: 1/2 PATCH, EVERY 12 HOURS
     Route: 061
     Dates: start: 20100210
  2. LORTAB [Concomitant]
     Indication: BACK PAIN
     Dosage: 7.5 MG, EVERY 8 HOURS
     Route: 048
  3. MULTI-VITAMIN [Concomitant]
     Dosage: UNK

REACTIONS (6)
  - CHEST PAIN [None]
  - INCREASED UPPER AIRWAY SECRETION [None]
  - NAUSEA [None]
  - PAIN IN EXTREMITY [None]
  - RECTAL DISCHARGE [None]
  - RHINORRHOEA [None]
